FAERS Safety Report 4972565-2 (Version None)
Quarter: 2006Q2

REPORT INFORMATION
  Report Type: 
  Country: None (occurrence: None)
  Receive Date: 20060413
  Receipt Date: 20051205
  Transmission Date: 20061013
  Serious: Yes (Hospitalization)
  Sender: FDA-Public Use
  Company Number: US-MERCK-0512USA00827

PATIENT
  Age: 62 Year
  Sex: Male
  Weight: 102 kg

DRUGS (4)
  1. VIOXX [Suspect]
     Indication: BACK PAIN
     Route: 048
     Dates: start: 20000330, end: 20040901
  2. PRAVACHOL [Concomitant]
     Indication: BLOOD CHOLESTEROL INCREASED
     Route: 065
     Dates: start: 20000101, end: 20051201
  3. PLETAL [Concomitant]
     Indication: THROMBOSIS
     Route: 065
     Dates: start: 20000101, end: 20031201
  4. ASPIRIN [Concomitant]
     Indication: THROMBOSIS
     Route: 065
     Dates: start: 20000101, end: 20051130

REACTIONS (6)
  - ANGIOPATHY [None]
  - BACK DISORDER [None]
  - DIABETES MELLITUS [None]
  - HYPERTENSION [None]
  - PERIPHERAL VASCULAR DISORDER [None]
  - THROMBOSIS [None]
